FAERS Safety Report 13951605 (Version 8)
Quarter: 2018Q1

REPORT INFORMATION
  Report Type: Report from Study
  Country: US (occurrence: US)
  Receive Date: 20170908
  Receipt Date: 20180220
  Transmission Date: 20180508
  Serious: Yes (Hospitalization, Other)
  Sender: FDA-Public Use
  Company Number: US-GILEAD-2017-0292417

PATIENT
  Age: 72 Year
  Sex: Female

DRUGS (1)
  1. AMBRISENTAN [Suspect]
     Active Substance: AMBRISENTAN
     Indication: PRODUCT USED FOR UNKNOWN INDICATION
     Dosage: 5 MG, QD
     Route: 065
     Dates: start: 20071107

REACTIONS (15)
  - Concussion [Unknown]
  - Confusional state [Not Recovered/Not Resolved]
  - Cerebrovascular accident [Unknown]
  - Musculoskeletal disorder [Unknown]
  - Mobility decreased [Not Recovered/Not Resolved]
  - Accident [Unknown]
  - Spinal operation [Unknown]
  - Gait inability [Not Recovered/Not Resolved]
  - Bone disorder [Not Recovered/Not Resolved]
  - Fall [Unknown]
  - Limb operation [Unknown]
  - Weight increased [Unknown]
  - Pain [Not Recovered/Not Resolved]
  - Osteoarthritis [Not Recovered/Not Resolved]
  - Nasopharyngitis [Unknown]
